FAERS Safety Report 24219150 (Version 1)
Quarter: 2024Q3

REPORT INFORMATION
  Report Type: Spontaneous
  Country: DE (occurrence: DE)
  Receive Date: 20240816
  Receipt Date: 20240816
  Transmission Date: 20241016
  Serious: Yes (Death, Other)
  Sender: BRISTOL MYERS SQUIBB
  Company Number: None

PATIENT
  Age: 71 Year
  Sex: Male
  Weight: 56 kg

DRUGS (1)
  1. OPDIVO [Suspect]
     Active Substance: NIVOLUMAB
     Indication: Non-small cell lung cancer
     Dates: start: 20230112, end: 20230131

REACTIONS (10)
  - Urinary tract infection [Not Recovered/Not Resolved]
  - Hypotonia [Fatal]
  - Guillain-Barre syndrome [Not Recovered/Not Resolved]
  - Acquired syringomyelia [Not Recovered/Not Resolved]
  - Coma [Fatal]
  - Oedema peripheral [Not Recovered/Not Resolved]
  - Aphasia [Fatal]
  - Monoplegia [Not Recovered/Not Resolved]
  - Auditory disorder [Not Recovered/Not Resolved]
  - Pulmonary embolism [Not Recovered/Not Resolved]

NARRATIVE: CASE EVENT DATE: 20230117
